FAERS Safety Report 8811510 (Version 1)
Quarter: 2012Q4

REPORT INFORMATION
  Report Type: 
  Country: US (occurrence: US)
  Receive Date: 20120927
  Receipt Date: 20120927
  Transmission Date: 20130627
  Serious: Yes (Other)
  Sender: FDA-Public Use
  Company Number: US-ELI_LILLY_AND_COMPANY-US201209003641

PATIENT
  Sex: Female
  Weight: 66.21 kg

DRUGS (13)
  1. CYMBALTA [Suspect]
     Indication: FIBROMYALGIA
     Dosage: 60mg, daily
     Dates: start: 201204
  2. XANAX [Concomitant]
     Indication: PANIC ATTACK
     Dosage: 1mg, qid
  3. LORTAB [Concomitant]
     Indication: PAIN
  4. VISTARIL [Concomitant]
  5. SEROQUEL [Concomitant]
     Dosage: 500mg, daily
  6. SEROQUEL [Concomitant]
     Dosage: 300mg, daily
  7. VICODIN [Concomitant]
     Indication: PAIN
  8. NORCO [Concomitant]
     Indication: PAIN
  9. AMBIEN [Concomitant]
     Dosage: 1df, bid
  10. CLONIDINE [Concomitant]
     Dosage: 0.1mg, daily
  11. ZANAFLEX [Concomitant]
     Dosage: Unk, Unk
  12. RITALIN [Concomitant]
     Dosage: 10mg, bid
  13. LYRICA [Concomitant]
     Indication: NEURALGIA
     Dosage: 50mg, bid
     Dates: start: 201206

REACTIONS (11)
  - Spinal column injury [Unknown]
  - Drug ineffective [Unknown]
  - Musculoskeletal pain [Unknown]
  - Fear [Unknown]
  - Disturbance in attention [Unknown]
  - Hallucination, visual [Unknown]
  - Back pain [Unknown]
  - Hypoaesthesia [Unknown]
  - Gait disturbance [Unknown]
  - Bipolar disorder [Unknown]
  - Feeling abnormal [Unknown]
